FAERS Safety Report 23257577 (Version 2)
Quarter: 2023Q4

REPORT INFORMATION
  Report Type: Report from Study
  Country: US (occurrence: US)
  Receive Date: 20231204
  Receipt Date: 20231220
  Transmission Date: 20240110
  Serious: Yes (Other)
  Sender: FDA-Public Use
  Company Number: US-ABBVIE-5486424

PATIENT
  Sex: Female

DRUGS (2)
  1. VENCLEXTA [Suspect]
     Active Substance: VENETOCLAX
     Indication: Product used for unknown indication
     Dosage: END DATE IN 2023
     Route: 048
     Dates: start: 20230523
  2. VENCLEXTA [Suspect]
     Active Substance: VENETOCLAX
     Indication: Product used for unknown indication
     Dosage: DOSE WAS DECREASED
     Route: 048
     Dates: start: 20230929

REACTIONS (7)
  - Breast cancer female [Unknown]
  - White blood cell count decreased [Recovering/Resolving]
  - Blood sodium decreased [Not Recovered/Not Resolved]
  - Cough [Recovered/Resolved]
  - Thrombocytopenia [Not Recovered/Not Resolved]
  - Nasal discomfort [Not Recovered/Not Resolved]
  - Nausea [Not Recovered/Not Resolved]

NARRATIVE: CASE EVENT DATE: 20230101
